FAERS Safety Report 4516663-6 (Version None)
Quarter: 2004Q4

REPORT INFORMATION
  Report Type: 
  Country: None (occurrence: None)
  Receive Date: 20041029
  Receipt Date: 20040713
  Transmission Date: 20050328
  Serious: No
  Sender: FDA-Public Use
  Company Number: 2004-118567-NL

PATIENT
  Sex: Female

DRUGS (2)
  1. NUVARING [Suspect]
     Indication: CONTRACEPTION
     Dosage: DF DAILY VAGINAL
     Route: 067
     Dates: start: 20030101, end: 20030708
  2. MACROBID [Concomitant]

REACTIONS (4)
  - APPLICATION SITE DISCOMFORT [None]
  - DYSURIA [None]
  - MEDICAL DEVICE DISCOMFORT [None]
  - UNINTENDED PREGNANCY [None]
